FAERS Safety Report 13582729 (Version 1)
Quarter: 2017Q2

REPORT INFORMATION
  Report Type: Spontaneous
  Country: US (occurrence: US)
  Receive Date: 20170525
  Receipt Date: 20170525
  Transmission Date: 20170830
  Serious: No
  Sender: FDA-Public Use
  Company Number: US-MYLANLABS-2016M1041886

PATIENT
  Sex: Male

DRUGS (2)
  1. TAMSULOSIN HCL CAPSULES, USP [Suspect]
     Active Substance: TAMSULOSIN HYDROCHLORIDE
     Indication: PROSTATOMEGALY
     Dosage: 0.4 MG, QD
     Route: 048
     Dates: start: 2015, end: 201609
  2. TAMSULOSIN HCL CAPSULES, USP [Suspect]
     Active Substance: TAMSULOSIN HYDROCHLORIDE
     Indication: DYSURIA
     Dosage: 0.4 MG, BID
     Route: 048
     Dates: start: 20160919, end: 20160924

REACTIONS (1)
  - Drug effect decreased [Recovering/Resolving]

NARRATIVE: CASE EVENT DATE: 2016
